FAERS Safety Report 25492076 (Version 1)
Quarter: 2025Q2

REPORT INFORMATION
  Report Type: Spontaneous
  Country: IN (occurrence: IN)
  Receive Date: 20250630
  Receipt Date: 20250630
  Transmission Date: 20250717
  Serious: Yes (Life-Threatening, Hospitalization)
  Sender: STRIDES
  Company Number: None

PATIENT
  Age: 48 Year
  Sex: Female

DRUGS (2)
  1. PREDNISOLONE [Suspect]
     Active Substance: PREDNISOLONE
     Indication: Glomerulonephritis rapidly progressive
     Route: 048
  2. CYCLOPHOSPHAMIDE [Suspect]
     Active Substance: CYCLOPHOSPHAMIDE
     Indication: Glomerulonephritis rapidly progressive
     Route: 048

REACTIONS (2)
  - Pulmonary alveolar haemorrhage [Recovered/Resolved]
  - Strongyloidiasis [Recovered/Resolved]
